FAERS Safety Report 15387120 (Version 1)
Quarter: 2018Q3

REPORT INFORMATION
  Report Type: Spontaneous
  Country: US (occurrence: US)
  Receive Date: 20180914
  Receipt Date: 20180914
  Transmission Date: 20181010
  Serious: Yes (Death, Hospitalization, Other)
  Sender: FDA-Public Use
  Company Number: US-LANNETT COMPANY, INC.-US-2018LAN001124

PATIENT
  Age: 27 Year
  Sex: Male

DRUGS (1)
  1. MORPHINE SULFATE. [Suspect]
     Active Substance: MORPHINE SULFATE
     Indication: PRODUCT USED FOR UNKNOWN INDICATION
     Dosage: UNK
     Route: 065

REACTIONS (14)
  - Coagulopathy [Unknown]
  - Acute kidney injury [Unknown]
  - Depressed level of consciousness [Unknown]
  - Respiratory depression [Unknown]
  - Anion gap [Unknown]
  - Coma [Fatal]
  - Hypotension [Unknown]
  - Toxicity to various agents [Fatal]
  - Bronchial hyperreactivity [Unknown]
  - Acute lung injury [Unknown]
  - Bradypnoea [Unknown]
  - Myocardial ischaemia [Unknown]
  - Rhabdomyolysis [Unknown]
  - Metabolic acidosis [Unknown]
